FAERS Safety Report 5217251-9 (Version None)
Quarter: 2007Q1

REPORT INFORMATION
  Report Type: 
  Country: None (occurrence: None)
  Receive Date: 20070122
  Receipt Date: 20070122
  Transmission Date: 20070707
  Serious: No
  Sender: FDA-Public Use
  Company Number: None

PATIENT
  Age: 60 Year
  Sex: Male

DRUGS (2)
  1. AMIODARONE HCL [Suspect]
     Dosage: 400 MG PO QD
     Route: 048
  2. WARFARIN SODIUM [Suspect]
     Dosage: 5 MG PO QD
     Route: 048

REACTIONS (8)
  - CONSTIPATION [None]
  - DIZZINESS [None]
  - DYSURIA [None]
  - GINGIVAL BLEEDING [None]
  - INCREASED TENDENCY TO BRUISE [None]
  - MELAENA [None]
  - MYALGIA [None]
  - PAIN [None]
